FAERS Safety Report 6292193-9 (Version None)
Quarter: 2009Q3

REPORT INFORMATION
  Report Type: 
  Country: None (occurrence: None)
  Receive Date: 20090731
  Receipt Date: 20090722
  Transmission Date: 20100115
  Serious: Yes (Other)
  Sender: FDA-Public Use
  Company Number: BR-JNJFOC-20090709220

PATIENT
  Age: 3 Month
  Sex: Male

DRUGS (2)
  1. DAKTARIN [Suspect]
     Route: 048
  2. DAKTARIN [Suspect]
     Indication: ORAL CANDIDIASIS
     Route: 048

REACTIONS (5)
  - ERYTHEMA [None]
  - MEDICATION ERROR [None]
  - ORAL CANDIDIASIS [None]
  - SKIN IRRITATION [None]
  - WOUND [None]
